FAERS Safety Report 9675517 (Version 1)
Quarter: 2013Q4

REPORT INFORMATION
  Report Type: Spontaneous
  Country: US (occurrence: US)
  Receive Date: 20131107
  Receipt Date: 20131107
  Transmission Date: 20140711
  Serious: Yes (Hospitalization)
  Sender: FDA-Public Use
  Company Number: US-MYLANLABS-2013S1024402

PATIENT
  Age: 5 Month
  Sex: Male
  Weight: 6.4 kg

DRUGS (7)
  1. VORICONAZOLE [Suspect]
     Indication: ACCIDENTAL OVERDOSE
     Dosage: 600MG
     Route: 048
  2. VORICONAZOLE [Interacting]
     Indication: ASPERGILLUS INFECTION
     Dosage: 600MG
     Route: 048
  3. VORICONAZOLE [Interacting]
     Indication: ACCIDENTAL OVERDOSE
  4. VORICONAZOLE [Interacting]
     Indication: ASPERGILLUS INFECTION
  5. TACROLIMUS [Interacting]
     Dosage: DOSED BY CONCENTRATION
     Route: 065
  6. AMPHOTERICIN B [Concomitant]
     Indication: ASPERGILLUS INFECTION
     Route: 065
  7. MYCOPHENOLATE MOFETIL [Concomitant]
     Dosage: DOSED BY CONCENTRATION
     Route: 065

REACTIONS (5)
  - Drug interaction [Recovered/Resolved]
  - Accidental overdose [Recovered/Resolved]
  - Incorrect dose administered [Recovered/Resolved]
  - Renal failure acute [Recovered/Resolved]
  - Vomiting [Recovered/Resolved]
